FAERS Safety Report 24400097 (Version 2)
Quarter: 2024Q4

REPORT INFORMATION
  Report Type: Spontaneous
  Country: US (occurrence: US)
  Receive Date: 20241005
  Receipt Date: 20241015
  Transmission Date: 20250115
  Serious: No
  Sender: CSL BEHRING
  Company Number: US-BEH-2024179608

PATIENT

DRUGS (1)
  1. HIZENTRA [Suspect]
     Active Substance: HUMAN IMMUNOGLOBULIN G
     Dosage: 10 G
     Route: 065

REACTIONS (2)
  - Product physical issue [Unknown]
  - Accidental exposure to product [Unknown]
